FAERS Safety Report 9832345 (Version 1)
Quarter: 2014Q1

REPORT INFORMATION
  Report Type: Report from Study
  Country: US (occurrence: US)
  Receive Date: 20140121
  Receipt Date: 20140121
  Transmission Date: 20141002
  Serious: Yes (Life-Threatening, Other)
  Sender: FDA-Public Use
  Company Number: US-US-EMD SERONO, INC.-7263240

PATIENT
  Sex: Female

DRUGS (1)
  1. REBIF [Suspect]
     Indication: PRODUCT USED FOR UNKNOWN INDICATION
     Dates: start: 20050824, end: 200905

REACTIONS (5)
  - Pneumonia [Unknown]
  - Injection site infection [Unknown]
  - Nausea [Unknown]
  - Hypokinesia [Unknown]
  - Asthenia [Unknown]
